FAERS Safety Report 5762698-5 (Version None)
Quarter: 2008Q2

REPORT INFORMATION
  Report Type: 
  Country: None (occurrence: None)
  Receive Date: 20080609
  Receipt Date: 20080603
  Transmission Date: 20081010
  Serious: Yes (Hospitalization)
  Sender: FDA-Public Use
  Company Number: AU-MERCK-0806AUS00020

PATIENT
  Age: 82 Year
  Sex: Female

DRUGS (4)
  1. JANUVIA [Suspect]
     Indication: TYPE 2 DIABETES MELLITUS
     Route: 065
     Dates: start: 20080529, end: 20080601
  2. METFORMIN [Concomitant]
     Indication: TYPE 2 DIABETES MELLITUS
     Route: 048
     Dates: end: 20080601
  3. FOSINOPRIL SODIUM [Concomitant]
     Indication: HYPERTENSION
     Route: 048
     Dates: end: 20080601
  4. PROPRANOLOL HYDROCHLORIDE [Concomitant]
     Indication: ESSENTIAL TREMOR
     Route: 065
     Dates: end: 20080601

REACTIONS (4)
  - CEREBROVASCULAR ACCIDENT [None]
  - LOSS OF CONSCIOUSNESS [None]
  - MYOCARDIAL INFARCTION [None]
  - VOMITING [None]
